FAERS Safety Report 8912017 (Version 3)
Quarter: 2012Q4

REPORT INFORMATION
  Report Type: 
  Country: US (occurrence: US)
  Receive Date: 20121116
  Receipt Date: 20121226
  Transmission Date: 20130627
  Serious: Yes (Other)
  Sender: FDA-Public Use
  Company Number: US-PFIZER INC-2012283035

PATIENT
  Age: 86 Year
  Sex: Female
  Weight: 58.96 kg

DRUGS (2)
  1. TOVIAZ [Suspect]
     Indication: OVERACTIVE BLADDER
     Dosage: 4 mg,daily
     Route: 048
     Dates: start: 201211
  2. BENICAR HCT [Concomitant]
     Indication: BLOOD PRESSURE HIGH
     Dosage: 40mg/25 mg,daily

REACTIONS (5)
  - Dizziness [Unknown]
  - Balance disorder [Unknown]
  - Hunger [Unknown]
  - Dry mouth [Unknown]
  - Abdominal discomfort [Not Recovered/Not Resolved]
